FAERS Safety Report 7444839-7 (Version None)
Quarter: 2011Q2

REPORT INFORMATION
  Report Type: 
  Country: None (occurrence: None)
  Receive Date: 20110426
  Receipt Date: 20110426
  Transmission Date: 20111010
  Serious: Yes (Life-Threatening, Hospitalization)
  Sender: FDA-Public Use
  Company Number: None

PATIENT
  Age: 47 Year
  Sex: Female
  Weight: 66.6788 kg

DRUGS (2)
  1. SAVELLA [Suspect]
     Indication: FIBROMYALGIA
     Dosage: 100MG  1 X DAY PO
     Route: 048
     Dates: start: 20091020, end: 20110330
  2. ADDERALL XR 25 [Suspect]
     Indication: ATTENTION DEFICIT/HYPERACTIVITY DISORDER
     Dosage: 50MG 1 X DAY PO
     Route: 048
     Dates: start: 20100502, end: 20110425

REACTIONS (11)
  - MUSCLE TWITCHING [None]
  - MUSCLE SPASMS [None]
  - ABDOMINAL DISCOMFORT [None]
  - DRUG INEFFECTIVE [None]
  - PAIN [None]
  - HALLUCINATION [None]
  - HEART RATE INCREASED [None]
  - DRUG WITHDRAWAL SYNDROME [None]
  - MUSCLE TIGHTNESS [None]
  - HEADACHE [None]
  - NAUSEA [None]
